FAERS Safety Report 14094153 (Version 1)
Quarter: 2017Q4

REPORT INFORMATION
  Report Type: Spontaneous
  Country: US (occurrence: US)
  Receive Date: 20171016
  Receipt Date: 20171016
  Transmission Date: 20180321
  Serious: No
  Sender: FDA-Public Use
  Company Number: US-AMGEN-USASP2017025376

PATIENT
  Age: 82 Year
  Sex: Female

DRUGS (9)
  1. ATORVASTATIN [Concomitant]
     Active Substance: ATORVASTATIN
  2. ZANTAC [Concomitant]
     Active Substance: RANITIDINE HYDROCHLORIDE
  3. ATENOLOL. [Concomitant]
     Active Substance: ATENOLOL
  4. PROLIA [Suspect]
     Active Substance: DENOSUMAB
     Indication: OSTEOPOROSIS POSTMENOPAUSAL
     Dosage: UNK, UNK
     Route: 065
     Dates: start: 201604
  5. LISINOPRIL. [Concomitant]
     Active Substance: LISINOPRIL
  6. SYNTHROID [Concomitant]
     Active Substance: LEVOTHYROXINE SODIUM
  7. BABY ASPIRIN [Concomitant]
     Active Substance: ASPIRIN
  8. BUPROPION. [Concomitant]
     Active Substance: BUPROPION
  9. PROZAC [Concomitant]
     Active Substance: FLUOXETINE HYDROCHLORIDE

REACTIONS (6)
  - Musculoskeletal stiffness [Unknown]
  - Dental caries [Unknown]
  - Arthropathy [Unknown]
  - Back injury [Unknown]
  - Dyspepsia [Unknown]
  - Confusional state [Unknown]

NARRATIVE: CASE EVENT DATE: 201605
